FAERS Safety Report 7041051-0 (Version None)
Quarter: 2010Q3

REPORT INFORMATION
  Report Type: 
  Country: None (occurrence: None)
  Receive Date: 20100929
  Receipt Date: 20100615
  Transmission Date: 20110219
  Serious: No
  Sender: FDA-Public Use
  Company Number: US-WYE-H15703310

PATIENT
  Age: 62 Year
  Sex: Female
  Weight: 55.39 kg

DRUGS (2)
  1. PRISTIQ [Suspect]
     Indication: ANXIETY
     Dosage: 50 MG 1X PER 1 DAY, ORAL
     Route: 048
     Dates: start: 20100611
  2. PRISTIQ [Suspect]
     Indication: DEPRESSION
     Dosage: 50 MG 1X PER 1 DAY, ORAL
     Route: 048
     Dates: start: 20100611

REACTIONS (8)
  - CONSTIPATION [None]
  - DRY MOUTH [None]
  - EYE IRRITATION [None]
  - HEADACHE [None]
  - HYPERHIDROSIS [None]
  - MYDRIASIS [None]
  - THINKING ABNORMAL [None]
  - VISION BLURRED [None]
